FAERS Safety Report 13406544 (Version 1)
Quarter: 2017Q2

REPORT INFORMATION
  Report Type: Report from Study
  Country: US (occurrence: US)
  Receive Date: 20170405
  Receipt Date: 20170405
  Transmission Date: 20170830
  Serious: No
  Sender: FDA-Public Use
  Company Number: GXBR2017US001011

PATIENT
  Age: 74 Year
  Sex: Female

DRUGS (2)
  1. OMNITROPE [Suspect]
     Active Substance: SOMATROPIN
     Indication: OSTEOPOROSIS
     Dosage: UNK DF, UNK
     Route: 065
     Dates: start: 201603
  2. PREDNISONE. [Concomitant]
     Active Substance: PREDNISONE
     Indication: OSTEOPOROSIS PROPHYLAXIS
     Dosage: UNK DF, UNK
     Route: 048

REACTIONS (1)
  - Hypersomnia [Not Recovered/Not Resolved]

NARRATIVE: CASE EVENT DATE: 201603
